FAERS Safety Report 14948142 (Version 2)
Quarter: 2018Q2

REPORT INFORMATION
  Report Type: Report from Study
  Country: CZ (occurrence: CZ)
  Receive Date: 20180529
  Receipt Date: 20180605
  Transmission Date: 20180711
  Serious: Yes (Hospitalization, Other)
  Sender: FDA-Public Use
  Company Number: CZ-PFIZER INC-2018212198

PATIENT
  Age: 56 Year
  Sex: Female
  Weight: 52 kg

DRUGS (8)
  1. HELICID /00661201/ [Concomitant]
     Indication: PROPHYLAXIS
     Route: 065
     Dates: start: 20151207, end: 20151207
  2. CALCIUM FOLINATE [Suspect]
     Active Substance: LEUCOVORIN CALCIUM
     Indication: COLORECTAL CANCER METASTATIC
     Route: 041
     Dates: start: 20151207, end: 20151207
  3. FLUOROURACIL. [Suspect]
     Active Substance: FLUOROURACIL
     Indication: COLORECTAL CANCER METASTATIC
     Dosage: 636 MG, CYCLIC
     Route: 040
     Dates: start: 20151207, end: 20151207
  4. IRINOTECAN HCL [Suspect]
     Active Substance: IRINOTECAN HYDROCHLORIDE
     Indication: COLORECTAL CANCER METASTATIC
     Route: 041
     Dates: start: 20151207, end: 20151207
  5. AFLIBERCEPT [Suspect]
     Active Substance: AFLIBERCEPT
     Indication: COLORECTAL CANCER METASTATIC
     Route: 041
     Dates: start: 20151207, end: 20151207
  6. EMEND [Concomitant]
     Active Substance: APREPITANT
     Route: 065
     Dates: start: 20151207, end: 20151209
  7. FLUOROURACIL. [Suspect]
     Active Substance: FLUOROURACIL
     Dosage: 3816 MG, CYCLIC
     Route: 041
     Dates: start: 20151207
  8. APAURIN [Concomitant]
     Active Substance: DIAZEPAM
     Route: 065
     Dates: start: 20151207, end: 20151207

REACTIONS (1)
  - Female genital tract fistula [Not Recovered/Not Resolved]

NARRATIVE: CASE EVENT DATE: 20151216
